FAERS Safety Report 9577174 (Version 1)
Quarter: 2013Q4

REPORT INFORMATION
  Report Type: Spontaneous
  Country: US (occurrence: US)
  Receive Date: 20131001
  Receipt Date: 20131001
  Transmission Date: 20140711
  Serious: Yes (Hospitalization, Other)
  Sender: FDA-Public Use
  Company Number: CHPA2013US014871

PATIENT
  Age: 58 Year
  Sex: Female

DRUGS (9)
  1. EXCEDRIN UNKNOWN [Suspect]
     Indication: PAIN
     Dosage: UNK, UNK
     Route: 048
  2. EXCEDRIN PM [Suspect]
     Indication: PAIN
     Dosage: 2 DF, QD PRN
     Route: 065
  3. EXCEDRIN EXTRA STRENGTH [Suspect]
     Indication: PAIN
     Dosage: 2 DF, BID
     Route: 065
  4. EXCEDRIN EXTRA STRENGTH [Suspect]
     Indication: ARTHRITIS
  5. EXCEDRIN ES BACK + BODY [Suspect]
     Indication: BACK PAIN
     Dosage: UNK, UNK
     Route: 065
  6. GABAPENTIN [Concomitant]
     Dosage: UNK, UNK
     Route: 065
  7. MORPHINE [Concomitant]
     Dosage: 15 MG, QD
     Route: 065
  8. MORPHINE [Concomitant]
     Dosage: 200 MG, QD
     Route: 065
  9. RITALIN [Concomitant]
     Dosage: UNK, UNK
     Route: 065

REACTIONS (11)
  - Spinal ligament ossification [Unknown]
  - Arthritis [Unknown]
  - Arthralgia [Unknown]
  - Local swelling [Not Recovered/Not Resolved]
  - Bursitis [Not Recovered/Not Resolved]
  - Gestational diabetes [Recovered/Resolved]
  - Diabetes mellitus [Recovered/Resolved]
  - Joint swelling [Not Recovered/Not Resolved]
  - Neuropathy peripheral [Not Recovered/Not Resolved]
  - Hypoaesthesia [Not Recovered/Not Resolved]
  - Insomnia [Unknown]
